FAERS Safety Report 18611433 (Version 1)
Quarter: 2020Q4

REPORT INFORMATION
  Report Type: Spontaneous
  Country: US (occurrence: US)
  Receive Date: 20201212
  Receipt Date: 20201212
  Transmission Date: 20210114
  Serious: Yes (Hospitalization)
  Sender: FDA-Public Use
  Company Number: None

PATIENT
  Age: 80 Year
  Sex: Male
  Weight: 81.8 kg

DRUGS (2)
  1. PACLITAXEL PROTEIN-BOUND PARTICLES (ALBUMIN-BOUND) [Suspect]
     Active Substance: PACLITAXEL
     Dates: end: 20201113
  2. GEMCITABINE HYDROCHLORIDE (613327) [Suspect]
     Active Substance: GEMCITABINE HYDROCHLORIDE
     Dates: end: 20201113

REACTIONS (18)
  - Lung opacity [None]
  - Blood alkaline phosphatase increased [None]
  - White blood cell count increased [None]
  - Pneumonia [None]
  - Right ventricular enlargement [None]
  - Ventricular tachycardia [None]
  - Lung hypoinflation [None]
  - Pulmonary infarction [None]
  - Deep vein thrombosis [None]
  - Pulmonary embolism [None]
  - Neutrophil count increased [None]
  - Atelectasis [None]
  - Right ventricular dysfunction [None]
  - Thrombophlebitis superficial [None]
  - Haemoglobin decreased [None]
  - Myocardial strain [None]
  - Lung consolidation [None]
  - Hypoxia [None]

NARRATIVE: CASE EVENT DATE: 20201127
